FAERS Safety Report 24203299 (Version 1)
Quarter: 2024Q3

REPORT INFORMATION
  Report Type: Spontaneous
  Country: US (occurrence: US)
  Receive Date: 20240813
  Receipt Date: 20240813
  Transmission Date: 20241016
  Serious: Yes (Other)
  Sender: JOHNSON AND JOHNSON
  Company Number: US-JNJFOC-20240817043

PATIENT

DRUGS (1)
  1. STELARA [Suspect]
     Active Substance: USTEKINUMAB
     Indication: Crohn^s disease
     Dosage: CURRENTLY Q4 STELARA INJECTIONS
     Route: 058
     Dates: start: 2020

REACTIONS (3)
  - Skin cancer [Unknown]
  - Melanocytic naevus [Unknown]
  - Off label use [Unknown]
